FAERS Safety Report 25380553 (Version 1)
Quarter: 2025Q2

REPORT INFORMATION
  Report Type: Report from Study
  Country: CA (occurrence: CA)
  Receive Date: 20250530
  Receipt Date: 20250530
  Transmission Date: 20250716
  Serious: Yes (Death)
  Sender: JOHNSON AND JOHNSON
  Company Number: CA-JNJFOC-20250534384

PATIENT

DRUGS (1)
  1. REMICADE [Suspect]
     Active Substance: INFLIXIMAB
     Indication: Crohn^s disease
     Route: 064
     Dates: start: 202205

REACTIONS (3)
  - Congenital musculoskeletal disorder of skull [Fatal]
  - Brain malformation [Fatal]
  - Foetal exposure during pregnancy [Unknown]
